FAERS Safety Report 7982960-5 (Version None)
Quarter: 2011Q4

REPORT INFORMATION
  Report Type: 
  Country: None (occurrence: None)
  Receive Date: 20111215
  Receipt Date: 20111206
  Transmission Date: 20120403
  Serious: Yes (Hospitalization, Other)
  Sender: FDA-Public Use
  Company Number: US-MERCK-1102USA01702

PATIENT
  Age: 79 Year
  Sex: Female
  Weight: 71 kg

DRUGS (8)
  1. FOSAMAX PLUS D [Suspect]
     Indication: OSTEOPENIA
     Route: 048
     Dates: start: 20060412, end: 20080601
  2. FOSAMAX [Suspect]
     Indication: OSTEOPENIA
     Route: 048
     Dates: start: 19970201, end: 20040801
  3. FOSAMAX [Suspect]
     Route: 048
     Dates: start: 20080620, end: 20080903
  4. TOPROL-XL [Concomitant]
     Indication: HYPERTENSION
     Route: 065
     Dates: start: 20040301
  5. FOSAMAX [Suspect]
     Route: 048
     Dates: start: 20021213, end: 20040101
  6. FOSAMAX [Suspect]
     Route: 048
     Dates: start: 20021213, end: 20040101
  7. ALENDRONATE SODIUM [Suspect]
     Indication: OSTEOPOROSIS
     Route: 048
     Dates: start: 20081002, end: 20100228
  8. FOSAMAX [Suspect]
     Indication: OSTEOPOROSIS PROPHYLAXIS
     Route: 048
     Dates: start: 19970201, end: 20040801

REACTIONS (19)
  - HIP FRACTURE [None]
  - BREAST DISORDER [None]
  - SPINAL OSTEOARTHRITIS [None]
  - OEDEMA [None]
  - FALL [None]
  - CERUMEN IMPACTION [None]
  - HYPERGLYCAEMIA [None]
  - URINARY RETENTION [None]
  - IRON DEFICIENCY ANAEMIA [None]
  - DYSPEPSIA [None]
  - CYSTOCELE [None]
  - FEMUR FRACTURE [None]
  - CATARACT [None]
  - NORMOCHROMIC NORMOCYTIC ANAEMIA [None]
  - TOOTH DISORDER [None]
  - HYPERLIPIDAEMIA [None]
  - COLONIC POLYP [None]
  - DRUG HYPERSENSITIVITY [None]
  - NECROSIS [None]
